FAERS Safety Report 4917869-4 (Version None)
Quarter: 2006Q1

REPORT INFORMATION
  Report Type: 
  Country: None (occurrence: None)
  Receive Date: 20060214
  Receipt Date: 20060203
  Transmission Date: 20060701
  Serious: Yes (Other)
  Sender: FDA-Public Use
  Company Number: 200610518GDS

PATIENT
  Age: 71 Year
  Sex: Male

DRUGS (3)
  1. CIPRO [Suspect]
     Dosage: 1500 MG, TOTAL DAILY, ORAL
     Route: 048
  2. ENTROPHEN [Concomitant]
  3. MOTILIUM [Concomitant]

REACTIONS (3)
  - ARTHRALGIA [None]
  - GANGRENE [None]
  - GOUT [None]
